FAERS Safety Report 10367501 (Version 1)
Quarter: 2014Q3

REPORT INFORMATION
  Report Type: Spontaneous
  Country: US (occurrence: None)
  Receive Date: 20140806
  Receipt Date: 20140806
  Transmission Date: 20150326
  Serious: Yes (Disabling, Other)
  Sender: FDA-Public Use
  Company Number: None

PATIENT
  Age: 64 Year
  Sex: Female
  Weight: 47.17 kg

DRUGS (10)
  1. TURMERIC [Concomitant]
     Active Substance: TURMERIC
  2. MEDIZINE [Concomitant]
  3. NORCO [Concomitant]
     Active Substance: ACETAMINOPHEN\HYDROCODONE BITARTRATE
  4. MS CONTIN [Concomitant]
     Active Substance: MORPHINE SULFATE
  5. VITAMIN B12 [Concomitant]
     Active Substance: CYANOCOBALAMIN
  6. KENALOG [Suspect]
     Active Substance: TRIAMCINOLONE ACETONIDE
     Indication: NECK PAIN
     Dosage: 40 MG, I BELIVE?40 MG KENALOG IN 4-6 ING PER VISIT?ONCE A WEEK X 4 WKS PER MD?SUBCUTANEOUS, I BELIEVE
     Route: 058
     Dates: start: 20140506, end: 20140611
  7. TROPMIN [Concomitant]
  8. IBUPROFEN. [Concomitant]
     Active Substance: IBUPROFEN
  9. KENALOG [Suspect]
     Active Substance: TRIAMCINOLONE ACETONIDE
     Indication: BACK PAIN
     Dosage: 40 MG, I BELIVE?40 MG KENALOG IN 4-6 ING PER VISIT?ONCE A WEEK X 4 WKS PER MD?SUBCUTANEOUS, I BELIEVE
     Route: 058
     Dates: start: 20140506, end: 20140611
  10. CALCIUM [Concomitant]
     Active Substance: CALCIUM

REACTIONS (12)
  - Vertigo [None]
  - Nervousness [None]
  - Vomiting [None]
  - Pulse pressure increased [None]
  - Heart rate increased [None]
  - Injection site pain [None]
  - Aphagia [None]
  - Tachycardia [None]
  - Tremor [None]
  - Nausea [None]
  - Weight decreased [None]
  - Dry mouth [None]

NARRATIVE: CASE EVENT DATE: 20140613
